FAERS Safety Report 19396853 (Version 1)
Quarter: 2021Q2

REPORT INFORMATION
  Report Type: Spontaneous
  Country: US (occurrence: US)
  Receive Date: 20210610
  Receipt Date: 20210610
  Transmission Date: 20210717
  Serious: Yes (Other)
  Sender: FDA-Public Use
  Company Number: US-UCBSA-2021018617

PATIENT

DRUGS (1)
  1. NAYZILAM [Suspect]
     Active Substance: MIDAZOLAM
     Indication: SEDATION
     Dosage: UNK

REACTIONS (3)
  - Respiratory depression [Unknown]
  - Respiratory arrest [Unknown]
  - Product use in unapproved indication [Unknown]
